FAERS Safety Report 5374021-9 (Version None)
Quarter: 2007Q2

REPORT INFORMATION
  Report Type: 
  Country: None (occurrence: None)
  Receive Date: 20070628
  Receipt Date: 20070625
  Transmission Date: 20071010
  Serious: Yes (Hospitalization)
  Sender: FDA-Public Use
  Company Number: FR-MERCK-0703FRA00069

PATIENT
  Age: 72 Year
  Sex: Female

DRUGS (3)
  1. COZAAR [Suspect]
     Indication: HYPERTENSION
     Route: 048
     Dates: start: 20070101
  2. LERCANIDIPINE [Concomitant]
     Indication: HYPERTENSION
     Route: 048
     Dates: start: 20060401, end: 20070401
  3. CALCIUM CARBONATE AND CHOLECALCIFEROL [Concomitant]
     Route: 048

REACTIONS (3)
  - COLECTOMY [None]
  - FEELING COLD [None]
  - THROAT IRRITATION [None]
